FAERS Safety Report 7091166-6 (Version None)
Quarter: 2010Q4

REPORT INFORMATION
  Report Type: 
  Country: None (occurrence: None)
  Receive Date: 20101109
  Receipt Date: 20101028
  Transmission Date: 20110411
  Serious: Yes (Hospitalization, Other)
  Sender: FDA-Public Use
  Company Number: PHHY2010US70237

PATIENT
  Sex: Male
  Weight: 72 kg

DRUGS (4)
  1. EXJADE [Suspect]
     Indication: THALASSAEMIA
     Dosage: 1250 MG, DAILY
     Route: 048
     Dates: start: 20101008, end: 20101020
  2. DIOVAN [Concomitant]
  3. COUMADIN [Concomitant]
  4. NEXIUM [Concomitant]

REACTIONS (8)
  - ABDOMINAL DISTENSION [None]
  - CARDIAC FAILURE CONGESTIVE [None]
  - CHEST PAIN [None]
  - CHRONIC OBSTRUCTIVE PULMONARY DISEASE [None]
  - DIARRHOEA [None]
  - DYSPNOEA [None]
  - PRODUCTIVE COUGH [None]
  - SWELLING FACE [None]
